FAERS Safety Report 7949455-6 (Version None)
Quarter: 2011Q4

REPORT INFORMATION
  Report Type: 
  Country: None (occurrence: None)
  Receive Date: 20111130
  Receipt Date: 20111123
  Transmission Date: 20120403
  Serious: Yes (Hospitalization)
  Sender: FDA-Public Use
  Company Number: GB-GLAXOSMITHKLINE-B0765088A

PATIENT
  Age: 45 Year
  Sex: Male

DRUGS (1)
  1. MALARONE [Suspect]
     Indication: MALARIA PROPHYLAXIS
     Dosage: 250MG PER DAY
     Route: 048
     Dates: start: 20111012, end: 20111110

REACTIONS (5)
  - HEADACHE [None]
  - PALLOR [None]
  - DIZZINESS [None]
  - COLD SWEAT [None]
  - SYNCOPE [None]
